FAERS Safety Report 6837833-8 (Version None)
Quarter: 2010Q3

REPORT INFORMATION
  Report Type: 
  Country: None (occurrence: None)
  Receive Date: 20100713
  Receipt Date: 20070523
  Transmission Date: 20110219
  Serious: No
  Sender: FDA-Public Use
  Company Number: US-PFIZER INC-2007039278

PATIENT
  Sex: Female
  Weight: 72.6 kg

DRUGS (2)
  1. VARENICLINE [Suspect]
     Indication: SMOKING CESSATION THERAPY
     Route: 048
     Dates: start: 20070503, end: 20070516
  2. CALCIUM [Concomitant]

REACTIONS (1)
  - ASTHENIA [None]
